FAERS Safety Report 9130769 (Version 3)
Quarter: 2013Q4

REPORT INFORMATION
  Report Type: Report from Study
  Country: MX (occurrence: MX)
  Receive Date: 20130301
  Receipt Date: 20131119
  Transmission Date: 20140711
  Serious: Yes (Other)
  Sender: FDA-Public Use
  Company Number: PHHY2012MX043467

PATIENT
  Age: 62 Year
  Sex: Female

DRUGS (9)
  1. CO-DIOVAN [Suspect]
     Indication: HYPERTENSION
     Dosage: 1 DF (160MG VALS/ 12.5MG HYDR), DAILY
     Route: 048
     Dates: start: 20090301
  2. DIOVAN [Suspect]
     Indication: HYPERTENSION
     Dosage: 1 DF (160MG), DAILY
     Dates: start: 20090317
  3. DIOVAN [Suspect]
     Dosage: 160MG, DAILY
     Dates: start: 2010
  4. EVIPRESS [Concomitant]
     Indication: HYPERTENSION
     Dosage: 1 DF, DAILY
     Dates: start: 200902
  5. EVIPRESS [Concomitant]
     Dosage: 2 DF, DAILY
     Dates: start: 2009
  6. EUTIROX [Concomitant]
     Indication: HYPOTHYROIDISM
     Dosage: 1 UKN, DAILY
     Dates: start: 2009
  7. EUTIROX [Concomitant]
     Dosage: 1.5 UNK, SATURDAYS AND SUNDAYS
     Dates: start: 2009
  8. CLONAZEPAM [Concomitant]
     Indication: ANXIETY DISORDER
     Dosage: 1 UKN, DAILY
  9. CYMBALTA [Concomitant]
     Dosage: 1 DF (60MG), DAILY

REACTIONS (7)
  - Overweight [Recovering/Resolving]
  - Weight increased [Recovering/Resolving]
  - Blood pressure inadequately controlled [Not Recovered/Not Resolved]
  - Weight decreased [Unknown]
  - Blood thyroid stimulating hormone increased [Unknown]
  - Tachycardia [Recovered/Resolved]
  - Vertigo [Not Recovered/Not Resolved]
